FAERS Safety Report 8271251 (Version 3)
Quarter: 2018Q1

REPORT INFORMATION
  Report Type: Report from Study
  Country: US (occurrence: US)
  Receive Date: 20111201
  Receipt Date: 20180125
  Transmission Date: 20180509
  Serious: Yes (Life-Threatening)
  Sender: FDA-Public Use
  Company Number: US-JNJFOC-20111112472

PATIENT
  Age: 19 Year
  Sex: Female
  Weight: 53.52 kg

DRUGS (1)
  1. INVEGA SUSTENNA [Suspect]
     Active Substance: PALIPERIDONE PALMITATE
     Indication: BIPOLAR DISORDER
     Route: 030
     Dates: start: 20111122

REACTIONS (6)
  - Swollen tongue [Unknown]
  - Trismus [Not Recovered/Not Resolved]
  - Unevaluable event [Unknown]
  - Pain [Not Recovered/Not Resolved]
  - Speech disorder [Unknown]
  - Hypersensitivity [Unknown]

NARRATIVE: CASE EVENT DATE: 201111
